FAERS Safety Report 5956361-5 (Version None)
Quarter: 2008Q4

REPORT INFORMATION
  Report Type: 
  Country: None (occurrence: None)
  Receive Date: 20081112
  Receipt Date: 20050304
  Transmission Date: 20090506
  Serious: Yes (Hospitalization, Disabling)
  Sender: FDA-Public Use
  Company Number: GXKR2005US00691

PATIENT
  Age: 13 Year
  Sex: Male

DRUGS (3)
  1. DIVALPROEX SODIUM [Suspect]
     Indication: PSYCHOTIC BEHAVIOUR
  2. RISPERIDONE [Suspect]
     Indication: PSYCHOTIC BEHAVIOUR
  3. CLONAZEPAM [Suspect]
     Indication: PSYCHOTIC BEHAVIOUR

REACTIONS (7)
  - BLOOD GLUCOSE ABNORMAL [None]
  - GLUCOSE URINE PRESENT [None]
  - LETHARGY [None]
  - POLYDIPSIA [None]
  - POLYURIA [None]
  - TYPE 1 DIABETES MELLITUS [None]
  - WEIGHT INCREASED [None]
